FAERS Safety Report 17045110 (Version 1)
Quarter: 2019Q4

REPORT INFORMATION
  Report Type: Spontaneous
  Country: US (occurrence: US)
  Receive Date: 20191018
  Receipt Date: 20191018
  Transmission Date: 20200122
  Serious: Yes (Hospitalization)
  Sender: FDA-Public Use
  Company Number: None

PATIENT
  Age: 39 Year
  Sex: Female

DRUGS (18)
  1. TOPRIMATE [Concomitant]
     Active Substance: TOPIRAMATE
  2. WARFARIN [Concomitant]
     Active Substance: WARFARIN
  3. BENZONATATE. [Concomitant]
     Active Substance: BENZONATATE
  4. LORATADINE. [Concomitant]
     Active Substance: LORATADINE
  5. NORCO [Concomitant]
     Active Substance: ACETAMINOPHEN\HYDROCODONE BITARTRATE
  6. PROBIOTIC [Concomitant]
     Active Substance: PROBIOTICS NOS
  7. TRAZODONE [Concomitant]
     Active Substance: TRAZODONE HYDROCHLORIDE
  8. CETIRIZINE [Concomitant]
     Active Substance: CETIRIZINE HYDROCHLORIDE
  9. DULOXETINE. [Concomitant]
     Active Substance: DULOXETINE
  10. PNV PRENATAL [Concomitant]
  11. PLAQUENIL [Concomitant]
     Active Substance: HYDROXYCHLOROQUINE SULFATE
  12. FLUTICASONE. [Concomitant]
     Active Substance: FLUTICASONE
  13. METHOTREXATE. [Concomitant]
     Active Substance: METHOTREXATE
  14. MULTIVITAMIN [Concomitant]
     Active Substance: VITAMINS
  15. ONDANSETRON [Concomitant]
     Active Substance: ONDANSETRON
  16. SUMATRIPTAN. [Concomitant]
     Active Substance: SUMATRIPTAN
  17. BENLYSTA [Suspect]
     Active Substance: BELIMUMAB
     Indication: ANTIPHOSPHOLIPID SYNDROME
     Route: 058
     Dates: start: 20180117
  18. FOLIC ACID. [Concomitant]
     Active Substance: FOLIC ACID

REACTIONS (1)
  - Condition aggravated [None]

NARRATIVE: CASE EVENT DATE: 20191017
